FAERS Safety Report 8280628-1 (Version None)
Quarter: 2012Q2

REPORT INFORMATION
  Report Type: 
  Country: None (occurrence: None)
  Receive Date: 20120412
  Receipt Date: 20111010
  Transmission Date: 20120825
  Serious: No
  Sender: FDA-Public Use
  Company Number: US-ASTRAZENECA-2011SE60817

PATIENT
  Age: 74 Year
  Sex: Female

DRUGS (2)
  1. NEXIUM [Suspect]
     Route: 048
  2. PRILOSEC [Suspect]
     Route: 048

REACTIONS (8)
  - GASTROOESOPHAGEAL REFLUX DISEASE [None]
  - ADVERSE EVENT [None]
  - GASTRIC DISORDER [None]
  - PAIN [None]
  - WRONG DRUG ADMINISTERED [None]
  - DYSPEPSIA [None]
  - DRUG INEFFECTIVE [None]
  - DRUG DOSE OMISSION [None]
